FAERS Safety Report 14224038 (Version 1)
Quarter: 2017Q4

REPORT INFORMATION
  Report Type: Spontaneous
  Country: US (occurrence: US)
  Receive Date: 20171123
  Receipt Date: 20171123
  Transmission Date: 20180321
  Serious: No
  Sender: FDA-Public Use
  Company Number: None

PATIENT
  Age: 25 Year
  Sex: Female
  Weight: 49.5 kg

DRUGS (2)
  1. ADDERALL [Suspect]
     Active Substance: AMPHETAMINE ASPARTATE\AMPHETAMINE SULFATE\DEXTROAMPHETAMINE SACCHARATE\DEXTROAMPHETAMINE SULFATE
     Indication: ATTENTION DEFICIT/HYPERACTIVITY DISORDER
  2. ADDERRALL IR [Concomitant]

REACTIONS (6)
  - Palpitations [None]
  - Weight decreased [None]
  - Drug ineffective [None]
  - Product substitution issue [None]
  - Decreased appetite [None]
  - Hyperhidrosis [None]

NARRATIVE: CASE EVENT DATE: 20171115
